FAERS Safety Report 25342630 (Version 1)
Quarter: 2025Q2

REPORT INFORMATION
  Report Type: Spontaneous
  Country: US (occurrence: None)
  Receive Date: 20250521
  Receipt Date: 20250521
  Transmission Date: 20250716
  Serious: Yes (Life-Threatening, Other)
  Sender: FDA-CTU
  Company Number: None

PATIENT
  Age: 44 Year
  Sex: Female
  Weight: 90.45 kg

DRUGS (2)
  1. SEMAGLUTIDE [Suspect]
     Active Substance: SEMAGLUTIDE
     Indication: Obesity
     Dates: start: 20240501, end: 20250201
  2. SEMAGLUTIDE [Concomitant]
     Active Substance: SEMAGLUTIDE
     Dates: start: 20240501, end: 20250201

REACTIONS (1)
  - Papillary thyroid cancer [None]

NARRATIVE: CASE EVENT DATE: 20250417
